FAERS Safety Report 23642379 (Version 2)
Quarter: 2024Q2

REPORT INFORMATION
  Report Type: Spontaneous
  Country: BR (occurrence: BR)
  Receive Date: 20240318
  Receipt Date: 20240425
  Transmission Date: 20240716
  Serious: No
  Sender: FDA-Public Use
  Company Number: BR-PFIZER INC-PV202400024760

PATIENT
  Age: 10 Year
  Sex: Female

DRUGS (1)
  1. SOMATROGON [Suspect]
     Active Substance: SOMATROGON
     Dosage: UNK
     Dates: start: 20240212

REACTIONS (4)
  - Fear of injection [Unknown]
  - Injection site pain [Unknown]
  - Injection site swelling [Unknown]
  - Intentional dose omission [Unknown]

NARRATIVE: CASE EVENT DATE: 20240219
